FAERS Safety Report 7657556-5 (Version None)
Quarter: 2011Q3

REPORT INFORMATION
  Report Type: 
  Country: None (occurrence: None)
  Receive Date: 20110804
  Receipt Date: 20110802
  Transmission Date: 20111222
  Serious: Yes (Life-Threatening, Hospitalization)
  Sender: FDA-Public Use
  Company Number: CA-AMGEN-CANCT2011039222

PATIENT
  Age: 50 Year
  Sex: Female

DRUGS (14)
  1. DENOSUMAB [Suspect]
     Indication: BREAST CANCER
     Dosage: 120 MG, Q3WK
     Route: 058
     Dates: start: 20110506
  2. IBUPROFEN [Concomitant]
     Dosage: UNK UNK, PRN
     Route: 048
     Dates: start: 19500101
  3. OXYCODONE HCL [Concomitant]
     Dosage: 5 MG, PRN
     Route: 048
     Dates: start: 20110530
  4. VITAMIN D [Concomitant]
     Dosage: 2000 IU, QD
     Route: 048
     Dates: start: 20110507
  5. SENOKOT [Concomitant]
     Dosage: UNK UNK, PRN
     Route: 048
     Dates: start: 20110507
  6. DOCETAXEL [Concomitant]
     Dosage: 75 MG/M2, Q3WK
     Route: 042
     Dates: start: 20110506
  7. MAXERAN [Concomitant]
     Dosage: 10 MG, PRN
     Route: 048
     Dates: start: 20110509
  8. CALCIUM ACETATE [Concomitant]
     Dosage: 500 MG, BID
     Route: 048
     Dates: start: 20110507
  9. DOCUSATE [Concomitant]
     Dosage: UNK UNK, PRN
     Route: 048
     Dates: start: 20110507
  10. PANTOPRAZOLE SODIUM [Concomitant]
     Dosage: 40 MG, QD
     Route: 048
     Dates: start: 20110527
  11. ZANTAC [Concomitant]
     Dosage: 150 MG, BID
     Route: 048
     Dates: start: 20110617
  12. CYCLOPHOSPHAMIDE [Concomitant]
     Dosage: 600 MG/M2, Q3WK
     Route: 042
     Dates: start: 20110506
  13. TYLENOL-500 [Concomitant]
     Dosage: UNK UNK, PRN
     Dates: start: 20110502
  14. DECADRON [Concomitant]
     Dosage: 8 MG, PER CHEMO REGIM
     Route: 048
     Dates: start: 20110505, end: 20110710

REACTIONS (1)
  - PULMONARY EMBOLISM [None]
